FAERS Safety Report 5748122-7 (Version None)
Quarter: 2008Q2

REPORT INFORMATION
  Report Type: 
  Country: None (occurrence: None)
  Receive Date: 20080521
  Receipt Date: 20080512
  Transmission Date: 20081010
  Serious: No
  Sender: FDA-Public Use
  Company Number: 2008-177226-NL

PATIENT
  Age: 37 Year
  Sex: Male

DRUGS (7)
  1. ROCURONIUM BROMIDE [Suspect]
     Dosage: INTRAVENOUS (NOS)
     Route: 042
     Dates: start: 20080417, end: 20080417
  2. SEVOFLURANE [Concomitant]
  3. PROPOFOL [Concomitant]
  4. FENTANYL CITRATE [Concomitant]
  5. ATROPINE SULFATE [Concomitant]
  6. CEFAZOLIN [Concomitant]
  7. TACALCITOL [Concomitant]

REACTIONS (1)
  - RHABDOMYOLYSIS [None]
